FAERS Safety Report 12737480 (Version 1)
Quarter: 2016Q3

REPORT INFORMATION
  Report Type: Report from Study
  Country: AR (occurrence: AR)
  Receive Date: 20160913
  Receipt Date: 20160913
  Transmission Date: 20161109
  Serious: Yes (Hospitalization)
  Sender: FDA-Public Use
  Company Number: AR-ABBVIE-16K-007-1724174-00

PATIENT
  Age: 70 Year

DRUGS (1)
  1. HUMIRA [Suspect]
     Active Substance: ADALIMUMAB
     Indication: RHEUMATOID ARTHRITIS
     Route: 058
     Dates: start: 20151204

REACTIONS (4)
  - Post procedural complication [Unknown]
  - Gallbladder disorder [Not Recovered/Not Resolved]
  - Fatigue [Unknown]
  - Porcelain gallbladder [Unknown]

NARRATIVE: CASE EVENT DATE: 20160904
